FAERS Safety Report 22892560 (Version 7)
Quarter: 2023Q4

REPORT INFORMATION
  Report Type: Report from Study
  Country: ZA (occurrence: ZA)
  Receive Date: 20230901
  Receipt Date: 20231218
  Transmission Date: 20240110
  Serious: Yes (Other)
  Sender: FDA-Public Use
  Company Number: ZA-002147023-NVSC2023ZA186422

PATIENT
  Age: 48 Year
  Sex: Male

DRUGS (4)
  1. FINGOLIMOD HYDROCHLORIDE [Suspect]
     Active Substance: FINGOLIMOD HYDROCHLORIDE
     Indication: Relapsing-remitting multiple sclerosis
     Dosage: 0.5 MG, QD
     Route: 048
     Dates: start: 20230824
  2. TEGRETOL [Suspect]
     Active Substance: CARBAMAZEPINE
     Indication: Product used for unknown indication
     Dosage: UNK
     Route: 065
  3. GABAPENTIN [Concomitant]
     Active Substance: GABAPENTIN
     Indication: Product used for unknown indication
     Dosage: 300 MG, QD
     Route: 065
  4. TRAZODONE [Concomitant]
     Active Substance: TRAZODONE HYDROCHLORIDE
     Indication: Product used for unknown indication
     Dosage: UNK, QD (AT NIGHT)
     Route: 065

REACTIONS (23)
  - Multiple sclerosis relapse [Unknown]
  - Memory impairment [Unknown]
  - Headache [Recovering/Resolving]
  - Dizziness [Unknown]
  - Hypoaesthesia [Unknown]
  - Pollakiuria [Unknown]
  - Hypersomnia [Unknown]
  - Dysphagia [Unknown]
  - Eye pain [Unknown]
  - Insomnia [Recovering/Resolving]
  - Ischaemia [Unknown]
  - Sinus arrhythmia [Unknown]
  - Burning sensation [Recovered/Resolved]
  - Peripheral coldness [Unknown]
  - Pain [Recovering/Resolving]
  - Mouth haemorrhage [Unknown]
  - Heart rate increased [Unknown]
  - Photopsia [Unknown]
  - Constipation [Unknown]
  - Vision blurred [Unknown]
  - Heart rate decreased [Recovering/Resolving]
  - Migraine [Unknown]
  - Arthralgia [Unknown]

NARRATIVE: CASE EVENT DATE: 20230824
